FAERS Safety Report 10187682 (Version 1)
Quarter: 2014Q2

REPORT INFORMATION
  Report Type: Spontaneous
  Country: US (occurrence: US)
  Receive Date: 20140522
  Receipt Date: 20140522
  Transmission Date: 20141212
  Serious: No
  Sender: FDA-Public Use
  Company Number: US-SANOFI-AVENTIS-2013SA088645

PATIENT
  Sex: 0

DRUGS (3)
  1. LANTUS SOLOSTAR [Suspect]
     Dosage: TAKEN FROM: LESS THAN 3 MONTHS
     Route: 065
  2. SOLOSTAR [Concomitant]
  3. VICTOZA [Suspect]
     Route: 065

REACTIONS (1)
  - Glycosylated haemoglobin increased [Unknown]
